FAERS Safety Report 4322186-X (Version None)
Quarter: 2004Q1

REPORT INFORMATION
  Report Type: 
  Country: None (occurrence: None)
  Receive Date: 20040319
  Receipt Date: 20040308
  Transmission Date: 20041129
  Serious: Yes (Hospitalization, Other)
  Sender: FDA-Public Use
  Company Number: 2004-00959

PATIENT
  Age: 66 Year
  Sex: Female
  Weight: 79.4 kg

DRUGS (1)
  1. FERRLECIT [Suspect]
     Indication: IRON DEFICIENCY ANAEMIA
     Dosage: 250 MG/250 ML OVER 3 HOURS, INTRAVENOUS
     Route: 042
     Dates: start: 20040225, end: 20040225

REACTIONS (6)
  - ABDOMINAL PAIN [None]
  - BLOOD PRESSURE DECREASED [None]
  - DIZZINESS [None]
  - FAECAL INCONTINENCE [None]
  - FLATULENCE [None]
  - SYNCOPE [None]
